FAERS Safety Report 10754473 (Version 4)
Quarter: 2015Q2

REPORT INFORMATION
  Report Type: Spontaneous
  Country: US (occurrence: None)
  Receive Date: 20150129
  Receipt Date: 20150506
  Transmission Date: 20150821
  Serious: Yes (Other)
  Sender: FDA-Public Use
  Company Number: US-001588N

PATIENT
  Sex: Female

DRUGS (4)
  1. MIRALAX [Concomitant]
     Active Substance: POLYETHYLENE GLYCOL 3350
  2. SOLUTIONS FOR PARENTERAL NUTRITION [Concomitant]
     Active Substance: AMINO ACIDS\DEXTROSE\ELECTROLYTES NOS
  3. GATTEX [Suspect]
     Active Substance: TEDUGLUTIDE\WATER
     Indication: SHORT-BOWEL SYNDROME
     Dosage: (DF SUBCUTANEOUS)?
     Route: 058
  4. MORPHINE [Concomitant]
     Active Substance: MORPHINE

REACTIONS (9)
  - Staphylococcal sepsis [None]
  - Dyspnoea [None]
  - Constipation [None]
  - Pyrexia [None]
  - Pain [None]
  - Oedema [None]
  - Headache [None]
  - Device related infection [None]
  - Treatment failure [None]
